FAERS Safety Report 25760415 (Version 1)
Quarter: 2025Q3

REPORT INFORMATION
  Report Type: Spontaneous
  Country: EU (occurrence: EU)
  Receive Date: 20250904
  Receipt Date: 20250904
  Transmission Date: 20251020
  Serious: Yes (Other)
  Sender: ROCHE
  Company Number: EU-ROCHE-10000317927

PATIENT
  Age: 79 Year
  Sex: Female

DRUGS (1)
  1. VABYSMO [Suspect]
     Active Substance: FARICIMAB-SVOA
     Indication: Neovascular age-related macular degeneration
     Route: 065
     Dates: start: 20240930

REACTIONS (6)
  - Vitritis [Recovered/Resolved]
  - Iritis [Recovered/Resolved]
  - Iridocyclitis [Recovered/Resolved]
  - Iridocyclitis [Recovered/Resolved]
  - Uveitis [Recovered/Resolved]
  - Chorioretinitis [Recovered/Resolved]

NARRATIVE: CASE EVENT DATE: 20250501
